FAERS Safety Report 4742944-7 (Version None)
Quarter: 2005Q3

REPORT INFORMATION
  Report Type: 
  Country: None (occurrence: None)
  Receive Date: 20050804
  Receipt Date: 20050422
  Transmission Date: 20060218
  Serious: No
  Sender: FDA-Public Use
  Company Number: FACT0500378

PATIENT
  Age: 66 Year
  Sex: Female
  Weight: 65.8 kg

DRUGS (7)
  1. FACTIVE [Suspect]
     Indication: RESPIRATORY TRACT INFECTION BACTERIAL
     Dosage: 320 MG, QD, ORAL
     Route: 048
     Dates: start: 20050413, end: 20050420
  2. PROTONIX [Concomitant]
  3. TRICOR [Concomitant]
  4. ECOTRIN (ACETYLSALICYLIC ACID) [Concomitant]
  5. NIASPAN [Concomitant]
  6. SYNTHROID [Concomitant]
  7. ZETIA [Concomitant]

REACTIONS (1)
  - RASH GENERALISED [None]
